FAERS Safety Report 15689274 (Version 3)
Quarter: 2020Q4

REPORT INFORMATION
  Report Type: Report from Study
  Country: CO (occurrence: CO)
  Receive Date: 20181205
  Receipt Date: 20201225
  Transmission Date: 20210113
  Serious: No
  Sender: FDA-Public Use
  Company Number: PHHY2018CO172446

PATIENT
  Sex: Female
  Weight: 64 kg

DRUGS (1)
  1. VOTRIENT [Suspect]
     Active Substance: PAZOPANIB HYDROCHLORIDE
     Indication: RENAL CELL CARCINOMA
     Dosage: 800 MG, QD
     Route: 048
     Dates: start: 20140416

REACTIONS (1)
  - Back pain [Unknown]
